FAERS Safety Report 22007389 (Version 1)
Quarter: 2023Q1

REPORT INFORMATION
  Report Type: Spontaneous
  Country: US (occurrence: US)
  Receive Date: 20230218
  Receipt Date: 20230218
  Transmission Date: 20230417
  Serious: No
  Sender: FDA-Public Use
  Company Number: US-ELI_LILLY_AND_COMPANY-US202302007183

PATIENT
  Sex: Female

DRUGS (1)
  1. TRULICITY [Suspect]
     Active Substance: DULAGLUTIDE
     Indication: Product used for unknown indication
     Dosage: 3 MG, UNKNOWN
     Route: 065

REACTIONS (7)
  - Impaired healing [Recovering/Resolving]
  - Discomfort [Recovering/Resolving]
  - Fungal infection [Not Recovered/Not Resolved]
  - Depression [Unknown]
  - Anxiety [Unknown]
  - Blood pressure increased [Unknown]
  - Blood glucose abnormal [Recovering/Resolving]
